FAERS Safety Report 13664453 (Version 2)
Quarter: 2017Q2

REPORT INFORMATION
  Report Type: Spontaneous
  Country: GB (occurrence: GB)
  Receive Date: 20170619
  Receipt Date: 20170622
  Transmission Date: 20170830
  Serious: Yes (Hospitalization, Other)
  Sender: FDA-Public Use
  Company Number: GB-MYLANLABS-2017M1034926

PATIENT

DRUGS (1)
  1. CLOZARIL [Suspect]
     Active Substance: CLOZAPINE
     Indication: SCHIZOPHRENIA
     Dosage: UNK
     Route: 048
     Dates: start: 20030425

REACTIONS (9)
  - Neutrophil count increased [Recovering/Resolving]
  - Platelet count increased [Recovered/Resolved]
  - Haemoglobin decreased [Recovering/Resolving]
  - White blood cell count increased [Unknown]
  - Neutrophil count decreased [Recovered/Resolved]
  - General physical condition abnormal [Unknown]
  - White blood cell count decreased [Recovered/Resolved]
  - Renal vasculitis [Unknown]
  - Renal disorder [Unknown]

NARRATIVE: CASE EVENT DATE: 2017
